FAERS Safety Report 6285206-1 (Version None)
Quarter: 2009Q3

REPORT INFORMATION
  Report Type: 
  Country: None (occurrence: None)
  Receive Date: 20090727
  Receipt Date: 20090720
  Transmission Date: 20100115
  Serious: Yes (Life-Threatening, Hospitalization)
  Sender: FDA-Public Use
  Company Number: PHHY2009CN30061

PATIENT
  Sex: Female

DRUGS (1)
  1. TEGRETOL [Suspect]
     Indication: EPILEPSY
     Dosage: UNK
     Dates: start: 20090422, end: 20090505

REACTIONS (6)
  - DERMATITIS CONTACT [None]
  - GLUCOSE-6-PHOSPHATE DEHYDROGENASE DEFICIENCY [None]
  - LEUKOPENIA [None]
  - RASH [None]
  - THROMBOCYTOPENIA [None]
  - UPPER RESPIRATORY TRACT INFECTION [None]
